FAERS Safety Report 7033017-1 (Version None)
Quarter: 2010Q4

REPORT INFORMATION
  Report Type: 
  Country: None (occurrence: None)
  Receive Date: 20101007
  Receipt Date: 20100926
  Transmission Date: 20110411
  Serious: Yes (Other)
  Sender: FDA-Public Use
  Company Number: US-PFIZER INC-2010122591

PATIENT
  Sex: Female
  Weight: 60.317 kg

DRUGS (6)
  1. LYRICA [Suspect]
     Indication: NEURALGIA
     Dosage: 100 MG, 3X/DAY
     Route: 048
     Dates: start: 20100915
  2. LYRICA [Suspect]
     Indication: PAIN
  3. MORPHINE [Suspect]
     Dosage: UNK
  4. ALEVE (CAPLET) [Concomitant]
     Indication: INFLAMMATION
     Dosage: UNK
  5. ALEVE (CAPLET) [Concomitant]
     Indication: PROCEDURAL PAIN
  6. LEXAPRO [Concomitant]
     Dosage: UNK

REACTIONS (6)
  - ANGER [None]
  - ARTHRITIS [None]
  - DYSKINESIA [None]
  - HYPOAESTHESIA [None]
  - OEDEMA PERIPHERAL [None]
  - WEIGHT INCREASED [None]
